FAERS Safety Report 18430880 (Version 1)
Quarter: 2020Q4

REPORT INFORMATION
  Report Type: Spontaneous
  Country: US (occurrence: US)
  Receive Date: 20201026
  Receipt Date: 20201026
  Transmission Date: 20210114
  Serious: Yes (Death)
  Sender: FDA-Public Use
  Company Number: None

PATIENT
  Age: 32 Year
  Sex: Female
  Weight: 63 kg

DRUGS (3)
  1. KARIVA [Suspect]
     Active Substance: DESOGESTREL\ETHINYL ESTRADIOL
     Indication: CONTRACEPTION
     Dates: end: 20200823
  2. CRANBERRY PILLS [Concomitant]
  3. APPLE CIDER VINEGAR CHEWS [Concomitant]

REACTIONS (4)
  - Unresponsive to stimuli [None]
  - Dyspnoea [None]
  - Fall [None]
  - Pulmonary embolism [None]

NARRATIVE: CASE EVENT DATE: 20200829
